FAERS Safety Report 10717219 (Version 9)
Quarter: 2015Q4

REPORT INFORMATION
  Report Type: Spontaneous
  Country: US (occurrence: US)
  Receive Date: 20150116
  Receipt Date: 20151117
  Transmission Date: 20160304
  Serious: Yes (Other)
  Sender: FDA-Public Use
  Company Number: US-PFIZER INC-2015017393

PATIENT
  Age: 68 Year
  Sex: Male
  Weight: 85 kg

DRUGS (18)
  1. NEURONTIN [Concomitant]
     Active Substance: GABAPENTIN
     Dosage: 400 MG, 3X/DAY
  2. ASPIRIN. [Concomitant]
     Active Substance: ASPIRIN
     Dosage: 81 MG, 2X/DAY
  3. GLUCOSAMINE [Concomitant]
     Active Substance: GLUCOSAMINE
     Dosage: 1500 MG, 2X/DAY
  4. NORCO [Concomitant]
     Active Substance: ACETAMINOPHEN\HYDROCODONE BITARTRATE
     Dosage: UNK, 2X/DAY
  5. MORPHINE [Concomitant]
     Active Substance: MORPHINE
     Dosage: 15 MG, 2X/DAY
  6. BENAZEPRIL [Concomitant]
     Active Substance: BENAZEPRIL HYDROCHLORIDE
     Dosage: 20 MG, 2X/DAY
  7. GABAPENTIN. [Concomitant]
     Active Substance: GABAPENTIN
     Dosage: UNK
  8. SUTENT [Suspect]
     Active Substance: SUNITINIB MALATE
     Dosage: 50 MG, CYCLIC (2 WEEKS ON/1 WEEK OFF)
     Route: 048
     Dates: start: 20150812, end: 20150915
  9. BABY ASPIRIN [Concomitant]
     Active Substance: ASPIRIN
     Dosage: UNK
  10. SUTENT [Suspect]
     Active Substance: SUNITINIB MALATE
     Indication: RENAL CANCER METASTATIC
     Dosage: 50 MG, CYCLIC (28 DAYS ON, 14 DAYS OFF)
     Route: 048
     Dates: start: 20141203
  11. GLIMEPIRIDE. [Concomitant]
     Active Substance: GLIMEPIRIDE
     Dosage: 4 MG 1 1/2 TABS DAILY
  12. FISH OIL [Concomitant]
     Active Substance: FISH OIL
     Dosage: 1000 DAILY
  13. CENTRUM SILVER [Concomitant]
     Active Substance: MINERALS\VITAMINS
     Dosage: 1 TABLET DAILY
  14. METOPROLOL [Concomitant]
     Active Substance: METOPROLOL
     Dosage: 50 MG, 2X/DAY
  15. HYDROCODONE [Concomitant]
     Active Substance: HYDROCODONE
     Dosage: UNK
  16. LIPITOR [Concomitant]
     Active Substance: ATORVASTATIN CALCIUM
     Dosage: 10 MG, DAILY (EVERY EVENING)
  17. VITAMIN E [Concomitant]
     Active Substance: .ALPHA.-TOCOPHEROL
     Dosage: UNK (400 DAILY)
  18. METFORMIN [Concomitant]
     Active Substance: METFORMIN HYDROCHLORIDE
     Dosage: 500 MG, DAILY

REACTIONS (18)
  - Fatigue [Recovered/Resolved]
  - Pyrexia [Unknown]
  - Skin reaction [Recovered/Resolved]
  - Hyperkeratosis [Recovered/Resolved]
  - Peripheral swelling [Unknown]
  - Diarrhoea [Not Recovered/Not Resolved]
  - Pain in extremity [Unknown]
  - Palmar-plantar erythrodysaesthesia syndrome [Recovered/Resolved]
  - Tremor [Unknown]
  - Disorientation [Unknown]
  - Pneumonia [Unknown]
  - Hypoaesthesia [Recovered/Resolved]
  - Ageusia [Recovered/Resolved]
  - Skin haemorrhage [Unknown]
  - Confusional state [Recovered/Resolved]
  - Stomatitis [Recovered/Resolved]
  - Skin fissures [Unknown]
  - Dry skin [Recovered/Resolved]

NARRATIVE: CASE EVENT DATE: 2015
